FAERS Safety Report 6522540-1 (Version None)
Quarter: 2009Q4

REPORT INFORMATION
  Report Type: 
  Country: None (occurrence: None)
  Receive Date: 20091224
  Receipt Date: 20091214
  Transmission Date: 20100525
  Serious: Yes (Hospitalization, Other)
  Sender: FDA-Public Use
  Company Number: 2009AL007767

PATIENT
  Sex: Female

DRUGS (7)
  1. OXYCODONE HCL CAPSULES, 5 MG (ATLLC) [Suspect]
     Indication: PAIN
     Dosage: 50 MG; PRN; PO
     Route: 048
  2. MEMANTINE [Concomitant]
  3. TRAZODONE HCL [Concomitant]
  4. LORAZEPAM [Concomitant]
  5. ACETAMINOPHEN [Concomitant]
  6. QUETIAPINE [Concomitant]
  7. OXYCONTIN [Concomitant]

REACTIONS (11)
  - ABDOMINAL PAIN [None]
  - ABNORMAL BEHAVIOUR [None]
  - AGITATION [None]
  - ANXIETY [None]
  - ARTHRALGIA [None]
  - FEELING COLD [None]
  - HYPERAESTHESIA [None]
  - MOANING [None]
  - PAIN IN EXTREMITY [None]
  - RESTLESSNESS [None]
  - SLEEP DISORDER [None]
